FAERS Safety Report 7772114-X (Version None)
Quarter: 2011Q3

REPORT INFORMATION
  Report Type: 
  Country: None (occurrence: None)
  Receive Date: 20110922
  Receipt Date: 20101214
  Transmission Date: 20111222
  Serious: No
  Sender: FDA-Public Use
  Company Number: US-ASTRAZENECA-2010SE59197

PATIENT
  Age: 45 Year
  Sex: Female

DRUGS (9)
  1. ATAPEC [Concomitant]
  2. HYDROCODONE [Concomitant]
  3. SEROQUEL [Suspect]
     Indication: POST-TRAUMATIC STRESS DISORDER
     Route: 048
     Dates: start: 20090211, end: 20101001
  4. SEROQUEL [Suspect]
     Route: 048
     Dates: start: 20101001
  5. SIMVASTATIN [Concomitant]
  6. ATENOLOL [Concomitant]
  7. VALIUM [Concomitant]
     Dosage: AS NEEDED
  8. PRISTIQ [Concomitant]
  9. VYCODAN [Concomitant]
     Indication: BACK PAIN
     Dosage: AS NEEDED

REACTIONS (5)
  - NIGHTMARE [None]
  - THERAPEUTIC RESPONSE UNEXPECTED [None]
  - SOMNOLENCE [None]
  - INITIAL INSOMNIA [None]
  - FLASHBACK [None]
